FAERS Safety Report 12312972 (Version 1)
Quarter: 2016Q2

REPORT INFORMATION
  Report Type: Spontaneous
  Country: US (occurrence: None)
  Receive Date: 20160427
  Receipt Date: 20160427
  Transmission Date: 20160815
  Serious: No
  Sender: FDA-Public Use
  Company Number: None

PATIENT
  Age: 54 Year
  Sex: Female

DRUGS (2)
  1. REMICADE [Suspect]
     Active Substance: INFLIXIMAB
     Indication: HIDRADENITIS
     Dosage: 300MG 0, 2, 6 WEEKS AND THEN EVERY IV
     Route: 042
     Dates: start: 20160216
  2. REMICADE [Suspect]
     Active Substance: INFLIXIMAB
     Indication: RHEUMATOID ARTHRITIS
     Dosage: 300MG 0, 2, 6 WEEKS AND THEN EVERY IV
     Route: 042
     Dates: start: 20160216

REACTIONS (4)
  - Blood pressure increased [None]
  - Cough [None]
  - Nausea [None]
  - Erythema [None]

NARRATIVE: CASE EVENT DATE: 20160405
